FAERS Safety Report 6159140-1 (Version None)
Quarter: 2009Q2

REPORT INFORMATION
  Report Type: 
  Country: None (occurrence: None)
  Receive Date: 20090415
  Receipt Date: 20090331
  Transmission Date: 20091009
  Serious: Yes (Hospitalization)
  Sender: FDA-Public Use
  Company Number: KV200900431

PATIENT
  Age: 63 Year
  Sex: Female

DRUGS (8)
  1. ISOSORBIDE MONONITRATE [Suspect]
     Indication: CARDIAC DISORDER
     Dosage: 30 MG, QD, ORAL
     Route: 048
     Dates: start: 20070901, end: 20080601
  2. PREVACID [Concomitant]
  3. FLEXERIL [Concomitant]
  4. CYCLOBENZAPRINE HCL [Concomitant]
  5. LISINOPRIL [Concomitant]
  6. WELLBUTRIN [Concomitant]
  7. RESTASIS (CICLOSPORIN) [Concomitant]
  8. VITAMIN B12 /00056201/ (CYANOCOBALAMIN) [Concomitant]

REACTIONS (5)
  - ASTHENIA [None]
  - DEPRESSION [None]
  - MENTAL DISORDER [None]
  - NERVOUS SYSTEM DISORDER [None]
  - TRANSIENT ISCHAEMIC ATTACK [None]
